FAERS Safety Report 23151218 (Version 1)
Quarter: 2023Q4

REPORT INFORMATION
  Report Type: Spontaneous
  Country: US (occurrence: US)
  Receive Date: 20231106
  Receipt Date: 20231106
  Transmission Date: 20240110
  Serious: Yes (Other)
  Sender: FDA-Public Use
  Company Number: US-GENMAB-2023-01817

PATIENT
  Age: 86 Year
  Sex: Male
  Weight: 59.4 kg

DRUGS (1)
  1. EPKINLY [Suspect]
     Active Substance: EPCORITAMAB-BYSP
     Indication: Diffuse large B-cell lymphoma
     Dosage: 48 MILLIGRAM (ON DAYS 1,8,15,22)
     Route: 065
     Dates: end: 20230803

REACTIONS (1)
  - Diffuse large B-cell lymphoma [Unknown]
